FAERS Safety Report 23718787 (Version 2)
Quarter: 2024Q2

REPORT INFORMATION
  Report Type: Spontaneous
  Country: JP (occurrence: JP)
  Receive Date: 20240408
  Receipt Date: 20240517
  Transmission Date: 20240716
  Serious: Yes (Hospitalization)
  Sender: FDA-Public Use
  Company Number: JP-MYLANLABS-2024M1029433

PATIENT
  Age: 62 Year
  Sex: Female
  Weight: 63.4 kg

DRUGS (8)
  1. CARBOPLATIN [Suspect]
     Active Substance: CARBOPLATIN
     Indication: Ovarian cancer stage III
     Dosage: THE DOSE WAS 520 MG TOGETHER WITH 50 MG AND 450 MG.
     Route: 042
     Dates: start: 20230522, end: 20230522
  2. CARBOPLATIN [Suspect]
     Active Substance: CARBOPLATIN
     Indication: Ovarian cancer stage III
     Dosage: THE DOSE WAS 520 MG TOGETHER WITH 50 MG AND 450 MG.
     Route: 042
     Dates: start: 20230522, end: 20230522
  3. AVASTIN [Concomitant]
     Active Substance: BEVACIZUMAB
     Indication: Product used for unknown indication
     Dosage: ONLY ONE DOSE ADMINISTERED
     Route: 042
     Dates: start: 20230522, end: 20230522
  4. GRANISETRON [Concomitant]
     Active Substance: GRANISETRON
     Indication: Product used for unknown indication
     Dosage: ONLY ONE DOSE ADMINISTERED
     Route: 042
     Dates: start: 20230522, end: 20230522
  5. DEXAMETHASONE SODIUM PHOSPHATE [Concomitant]
     Active Substance: DEXAMETHASONE PHOSPHATE\DEXAMETHASONE SODIUM PHOSPHATE
     Indication: Product used for unknown indication
     Dosage: ONLY ONE DOSE ADMINISTERED
     Dates: start: 20230522, end: 20230522
  6. GASTER [Concomitant]
     Active Substance: FAMOTIDINE
     Indication: Product used for unknown indication
     Dosage: ONLY ONE DOSE ADMINISTERED
     Dates: start: 20230522, end: 20230522
  7. POLARAMINE [Concomitant]
     Active Substance: DEXCHLORPHENIRAMINE MALEATE
     Indication: Product used for unknown indication
     Dosage: ONLY ONE DOSE ADMINISTERED
     Dates: start: 20230522, end: 20230522
  8. PACLITAXEL [Concomitant]
     Active Substance: PACLITAXEL
     Indication: Product used for unknown indication
     Dosage: ONLY ONE DOSE ADMINISTERED
     Dates: start: 20230522, end: 20230522

REACTIONS (3)
  - Depressed level of consciousness [Recovered/Resolved]
  - Blood pressure decreased [Recovered/Resolved]
  - Oxygen saturation decreased [Recovered/Resolved]

NARRATIVE: CASE EVENT DATE: 20230522
